FAERS Safety Report 5457903-9 (Version None)
Quarter: 2007Q3

REPORT INFORMATION
  Report Type: 
  Country: None (occurrence: None)
  Receive Date: 20070918
  Receipt Date: 20070911
  Transmission Date: 20080115
  Serious: Yes (Other)
  Sender: FDA-Public Use
  Company Number: GB-PFIZER INC-2007076229

PATIENT
  Age: 53 Year
  Sex: Male
  Weight: 99 kg

DRUGS (11)
  1. PREDNISONE [Suspect]
     Indication: NON-HODGKIN'S LYMPHOMA
  2. CYCLOPHOSPHAMIDE [Suspect]
     Indication: NON-HODGKIN'S LYMPHOMA
  3. VINCRISTINE [Suspect]
     Indication: NON-HODGKIN'S LYMPHOMA
  4. RITUXAN [Suspect]
     Indication: NON-HODGKIN'S LYMPHOMA
     Route: 042
     Dates: start: 20070202, end: 20070202
  5. ALLOPURINOL [Concomitant]
  6. CODEINE PHOSPHATE [Concomitant]
  7. CO-TRIMOXAZOLE [Concomitant]
  8. DOMPERIDONE [Concomitant]
  9. LACTULOSE [Concomitant]
  10. OMEPRAZOLE [Concomitant]
  11. PREDNISOLONE [Concomitant]

REACTIONS (1)
  - HYPERSENSITIVITY [None]
